FAERS Safety Report 11777061 (Version 2)
Quarter: 2015Q4

REPORT INFORMATION
  Report Type: Report from Study
  Country: BR (occurrence: BR)
  Receive Date: 20151125
  Receipt Date: 20151227
  Transmission Date: 20160304
  Serious: Yes (Life-Threatening, Hospitalization)
  Sender: FDA-Public Use
  Company Number: PHHY2015BR153340

PATIENT
  Age: 79 Year
  Sex: Female
  Weight: 80 kg

DRUGS (2)
  1. ACLASTA [Suspect]
     Active Substance: ZOLEDRONIC ACID
     Indication: OSTEOPOROSIS
     Dosage: 5 MG, Q12MO
     Route: 042
     Dates: start: 2013
  2. ACLASTA [Suspect]
     Active Substance: ZOLEDRONIC ACID
     Dosage: 5 MG, Q12MO
     Route: 042
     Dates: start: 20140916

REACTIONS (13)
  - Overweight [Unknown]
  - Asthenia [Unknown]
  - Fall [Unknown]
  - Femur fracture [Not Recovered/Not Resolved]
  - Haemorrhage [Unknown]
  - Pain [Not Recovered/Not Resolved]
  - Vomiting [Unknown]
  - Retching [Unknown]
  - Back pain [Not Recovered/Not Resolved]
  - Apparent death [Unknown]
  - Dysphagia [Unknown]
  - Spinal disorder [Unknown]
  - Moaning [Unknown]

NARRATIVE: CASE EVENT DATE: 201411
